FAERS Safety Report 15035702 (Version 1)
Quarter: 2018Q2

REPORT INFORMATION
  Report Type: Spontaneous
  Country: GB (occurrence: GB)
  Receive Date: 20180620
  Receipt Date: 20180620
  Transmission Date: 20180711
  Serious: Yes (Other)
  Sender: FDA-Public Use
  Company Number: GB-GLAXOSMITHKLINE-GB2018106015

PATIENT
  Age: 70 Year
  Sex: Male

DRUGS (1)
  1. ACICLOVIR [Suspect]
     Active Substance: ACYCLOVIR
     Indication: HERPES SIMPLEX
     Dosage: STRENGTH: 400 MGSPLIT 400 MG TABLET IN HALF AND 200 MG TAKEN IN MORNING AND 200 MG IN EVENING
     Route: 065

REACTIONS (2)
  - Hypertension [Unknown]
  - Wrong technique in product usage process [Unknown]
